FAERS Safety Report 19186841 (Version 1)
Quarter: 2021Q2

REPORT INFORMATION
  Report Type: Report from Study
  Country: None (occurrence: US)
  Receive Date: 20210428
  Receipt Date: 20210428
  Transmission Date: 20210717
  Serious: Yes (Other)
  Sender: FDA-Public Use
  Company Number: US-ABBVIE-20K-163-3336094-00

PATIENT
  Age: 78 Year
  Sex: Male

DRUGS (3)
  1. BREO ELLIPTA [Concomitant]
     Active Substance: FLUTICASONE FUROATE\VILANTEROL TRIFENATATE
     Indication: PRODUCT USED FOR UNKNOWN INDICATION
  2. HUMIRA [Suspect]
     Active Substance: ADALIMUMAB
     Route: 058
  3. HUMIRA [Suspect]
     Active Substance: ADALIMUMAB
     Indication: RHEUMATOID ARTHRITIS
     Route: 058

REACTIONS (5)
  - Cerebrovascular accident [Not Recovered/Not Resolved]
  - Memory impairment [Not Recovered/Not Resolved]
  - Device deployment issue [Not Recovered/Not Resolved]
  - Tooth extraction [Not Recovered/Not Resolved]
  - Procedural pain [Not Recovered/Not Resolved]

NARRATIVE: CASE EVENT DATE: 202001
